FAERS Safety Report 19814779 (Version 3)
Quarter: 2021Q4

REPORT INFORMATION
  Report Type: Spontaneous
  Country: US (occurrence: US)
  Receive Date: 20210910
  Receipt Date: 20211028
  Transmission Date: 20220303
  Serious: Yes (Life-Threatening, Other)
  Sender: FDA-Public Use
  Company Number: US-ULTRAGENYX PHARMACEUTICAL INC.-US-UGNX-21-00294

PATIENT
  Age: 9 Year
  Sex: Female

DRUGS (21)
  1. DOJOLVI [Suspect]
     Active Substance: TRIHEPTANOIN
     Indication: Gene mutation
     Dates: start: 20210417, end: 20210511
  2. DOJOLVI [Suspect]
     Active Substance: TRIHEPTANOIN
  3. DOJOLVI [Suspect]
     Active Substance: TRIHEPTANOIN
     Dates: start: 20210818
  4. SMOFLIPID [Concomitant]
     Active Substance: FISH OIL\MEDIUM-CHAIN TRIGLYCERIDES\OLIVE OIL\SOYBEAN OIL
     Indication: Product used for unknown indication
     Dosage: 20% 250 ML DRIP
  5. TYLENOL [Concomitant]
     Active Substance: ACETAMINOPHEN
     Indication: Product used for unknown indication
  6. COENZYME Q10 [Concomitant]
     Active Substance: DIETARY SUPPLEMENT\UBIDECARENONE
     Indication: Product used for unknown indication
  7. DIASTAT [Concomitant]
     Active Substance: DIAZEPAM
     Indication: Product used for unknown indication
     Route: 054
  8. VALIUM [Concomitant]
     Active Substance: DIAZEPAM
     Indication: Product used for unknown indication
  9. COLACE [Concomitant]
     Active Substance: DOCUSATE SODIUM
     Indication: Product used for unknown indication
  10. SANI-SUPP [Concomitant]
     Indication: Product used for unknown indication
     Dosage: 1 SUPPOSITORY
  11. HYDROCORTISONE [Concomitant]
     Active Substance: HYDROCORTISONE
     Indication: Product used for unknown indication
     Dosage: 2.5 %, 1 APPLICATION
  12. LANTUS [Concomitant]
     Active Substance: INSULIN GLARGINE
     Indication: Product used for unknown indication
     Dosage: 45 UNITS
  13. CARNITOR [Concomitant]
     Active Substance: LEVOCARNITINE
     Indication: Product used for unknown indication
  14. MCT [Concomitant]
     Indication: Product used for unknown indication
  15. MELATONIN [Concomitant]
     Active Substance: MELATONIN
     Indication: Product used for unknown indication
  16. AFRIN [Concomitant]
     Active Substance: OXYMETAZOLINE
     Indication: Product used for unknown indication
     Dosage: 0.05% ONE SPRAY
     Route: 045
  17. AKWA TEARS [Concomitant]
     Active Substance: POLYVINYL ALCOHOL
     Indication: Product used for unknown indication
     Route: 047
  18. MIRALAX [Concomitant]
     Active Substance: POLYETHYLENE GLYCOL 3350
     Indication: Product used for unknown indication
  19. TOPAMAX [Concomitant]
     Active Substance: TOPIRAMATE
     Indication: Product used for unknown indication
  20. KENALOG [Concomitant]
     Active Substance: TRIAMCINOLONE ACETONIDE
     Indication: Product used for unknown indication
     Dosage: 0.5 % CREAM
  21. ACTIGALL [Concomitant]
     Active Substance: URSODIOL
     Indication: Product used for unknown indication
     Dosage: SUSPENSION

REACTIONS (2)
  - Compartment syndrome [Recovered/Resolved]
  - Off label use [Unknown]

NARRATIVE: CASE EVENT DATE: 20210513
